FAERS Safety Report 11870574 (Version 1)
Quarter: 2015Q4

REPORT INFORMATION
  Report Type: Spontaneous
  Country: US (occurrence: US)
  Receive Date: 20151228
  Receipt Date: 20151228
  Transmission Date: 20160305
  Serious: Yes (Other)
  Sender: FDA-Public Use
  Company Number: US-SANOFI-AVENTIS-2012SA068067

PATIENT
  Age: 51 Year
  Sex: Male

DRUGS (3)
  1. PLAVIX [Suspect]
     Active Substance: CLOPIDOGREL BISULFATE
     Indication: STENT PLACEMENT
     Route: 065
     Dates: start: 20051214, end: 20091113
  2. PLAVIX [Suspect]
     Active Substance: CLOPIDOGREL BISULFATE
     Indication: ACUTE CORONARY SYNDROME
     Route: 065
     Dates: start: 20051214, end: 20091113
  3. ASPIRIN. [Concomitant]
     Active Substance: ASPIRIN
     Dates: start: 20051214

REACTIONS (6)
  - Haemorrhage [Unknown]
  - Blood urine present [Unknown]
  - Cerebrovascular accident [Unknown]
  - Cerebral haemorrhage [Unknown]
  - Dysarthria [Unknown]
  - Asthenia [Unknown]

NARRATIVE: CASE EVENT DATE: 200902
